FAERS Safety Report 24368827 (Version 2)
Quarter: 2024Q4

REPORT INFORMATION
  Report Type: Report from Study
  Country: TR (occurrence: TR)
  Receive Date: 20240927
  Receipt Date: 20241003
  Transmission Date: 20250114
  Serious: Yes (Death, Hospitalization)
  Sender: ABBVIE
  Company Number: TR-ABBVIE-5937375

PATIENT
  Age: 76 Year
  Sex: Male
  Weight: 68 kg

DRUGS (6)
  1. CARBIDOPA\LEVODOPA [Suspect]
     Active Substance: CARBIDOPA\LEVODOPA
     Indication: Parkinson^s disease
     Dosage: MORNING DOSE (ML): 4.00 CONTINUOUS DOSE (ML): 1.40 EXTRA DOSE (ML): 1.00
     Route: 050
     Dates: start: 20240918
  2. CARBIDOPA\LEVODOPA [Suspect]
     Active Substance: CARBIDOPA\LEVODOPA
  3. SILODOSIN [Concomitant]
     Active Substance: SILODOSIN
     Indication: Prostatic disorder
     Dosage: FORM STRENGTH: 8 MILLIGRAM
     Route: 048
  4. DOPADEX SR [Concomitant]
     Indication: Parkinson^s disease
     Dosage: 50 MILLIGRAM
     Route: 048
     Dates: start: 2010
  5. SEROQUEL [Concomitant]
     Active Substance: QUETIAPINE FUMARATE
     Indication: Sleep disorder
     Dosage: FORM STRENGHT-25 MILLIGRAM?FREQUENCY TEXT: 1 X 2
     Route: 048
     Dates: start: 2017
  6. EXELON [Concomitant]
     Active Substance: RIVASTIGMINE TARTRATE
     Indication: Dementia
     Dosage: FORM STRENGTH- 3 MILLIGRAM
     Route: 048
     Dates: start: 2020

REACTIONS (7)
  - Pneumonia aspiration [Fatal]
  - Flatulence [Recovered/Resolved]
  - Vomiting [Recovered/Resolved]
  - C-reactive protein increased [Not Recovered/Not Resolved]
  - Abdominal pain upper [Unknown]
  - Abdominal infection [Recovering/Resolving]
  - Oxygen saturation decreased [Recovered/Resolved]

NARRATIVE: CASE EVENT DATE: 20240921
